FAERS Safety Report 14066118 (Version 1)
Quarter: 2017Q4

REPORT INFORMATION
  Report Type: Spontaneous
  Country: US (occurrence: None)
  Receive Date: 20171006
  Receipt Date: 20171006
  Transmission Date: 20180321
  Serious: No
  Sender: FDA-Public Use
  Company Number: None

PATIENT
  Age: 48 Year
  Sex: Female

DRUGS (1)
  1. TEMOZOLOMIDE CAP 250MG [Suspect]
     Active Substance: TEMOZOLOMIDE
     Dosage: 350MG QD FOR 5 DA  ORAL
     Route: 048

REACTIONS (3)
  - Vomiting [None]
  - Rash [None]
  - Drug dose omission [None]

NARRATIVE: CASE EVENT DATE: 20171004
